FAERS Safety Report 7851951-7 (Version None)
Quarter: 2011Q4

REPORT INFORMATION
  Report Type: 
  Country: None (occurrence: None)
  Receive Date: 20111026
  Receipt Date: 20111013
  Transmission Date: 20120403
  Serious: Yes (Hospitalization, Other)
  Sender: FDA-Public Use
  Company Number: US-ELI_LILLY_AND_COMPANY-US201110004275

PATIENT
  Sex: Female

DRUGS (6)
  1. CYMBALTA [Suspect]
     Indication: DEPRESSION
     Dosage: 30 MG, TID
     Dates: end: 20110901
  2. LISINOPRIL                              /USA/ [Concomitant]
     Dosage: 20 MG, BID
  3. METFORMIN HCL [Concomitant]
     Dosage: 1000 MG, QD
  4. JANUVIA [Concomitant]
     Dosage: 100 MG, QD
  5. LORTAB [Concomitant]
     Indication: PAIN
     Dosage: UNK
  6. LANTUS [Concomitant]
     Dosage: 60 U, QD

REACTIONS (8)
  - INTENTIONAL DRUG MISUSE [None]
  - NEURALGIA [None]
  - COLON CANCER [None]
  - BLOOD IRON DECREASED [None]
  - ECONOMIC PROBLEM [None]
  - BLOOD GLUCOSE FLUCTUATION [None]
  - PERIPHERAL VASCULAR DISORDER [None]
  - BURNING SENSATION [None]
